FAERS Safety Report 8269750-3 (Version None)
Quarter: 2012Q2

REPORT INFORMATION
  Report Type: 
  Country: None (occurrence: None)
  Receive Date: 20120405
  Receipt Date: 20120320
  Transmission Date: 20120825
  Serious: Yes (Hospitalization, Other)
  Sender: FDA-Public Use
  Company Number: 2012-000517

PATIENT
  Age: 70 Year
  Sex: Female

DRUGS (29)
  1. CYCLOBENZAPRINE [Concomitant]
  2. ENALAPRIL MALEATE [Concomitant]
  3. ATENOLOL [Concomitant]
  4. METHYLPREDNISOLONE [Concomitant]
  5. SPORANOX [Concomitant]
  6. CEPHALEXIN (00145501) (CEFALEXIN) [Concomitant]
  7. HYDROCORTISONE VALERATE (HYDROCORTISONE VALERATE) [Concomitant]
  8. PREDNISONE TAB [Concomitant]
  9. NEXIUM [Concomitant]
  10. ADVAIR (FLUTICASONE PROPINATE, SALMETEROL XINAFOATE) [Concomitant]
  11. VIOXX [Concomitant]
  12. SMZ-TMP (SULFAMETHOXAZOLE, TRIMETHOPRIM) [Concomitant]
  13. AMITRIPTYLINE HCL [Concomitant]
  14. SERTRTALINE (SERTRALINE) [Concomitant]
  15. CLINDAMYCIN [Concomitant]
  16. IBUPROFEN [Concomitant]
  17. DIAZEPAM [Concomitant]
  18. PRILOSEC [Concomitant]
  19. ACTONEL [Suspect]
     Indication: OSTEOPOROSIS
     Dosage: 35 MG ONCE WEEKLY, ORAL
     Route: 048
     Dates: start: 20021124, end: 20100301
  20. CALCIUM CARBONATE [Concomitant]
  21. BEXTRA (01401501) (VALDECOXIB) [Concomitant]
  22. DOXYCYCLINE [Concomitant]
  23. ULTRAM [Concomitant]
  24. NORVASC (AMLOIDPINE BESILATE) [Concomitant]
  25. HYDROCHLOROTHIAZIDE [Concomitant]
  26. PREVIENT (SODIUIM FLUORIDE) [Concomitant]
  27. CHLORHEXIDINE GLUCONATE [Concomitant]
  28. PREMARIN [Concomitant]
  29. SALSALATE (SALSALATE) [Concomitant]

REACTIONS (4)
  - COMMINUTED FRACTURE [None]
  - HYPOAESTHESIA [None]
  - FEMUR FRACTURE [None]
  - PAIN IN EXTREMITY [None]
